FAERS Safety Report 5911987-X (Version None)
Quarter: 2008Q4

REPORT INFORMATION
  Report Type: 
  Country: None (occurrence: None)
  Receive Date: 20081008
  Receipt Date: 20081006
  Transmission Date: 20090506
  Serious: Yes (Death)
  Sender: FDA-Public Use
  Company Number: PHHY2008JP23788

PATIENT
  Age: 64 Year
  Sex: Female

DRUGS (1)
  1. NEORAL [Suspect]
     Indication: REFRACTORY ANAEMIA
     Route: 048

REACTIONS (2)
  - INFECTION [None]
  - MULTI-ORGAN FAILURE [None]
